FAERS Safety Report 15022566 (Version 1)
Quarter: 2018Q2

REPORT INFORMATION
  Report Type: Spontaneous
  Country: US (occurrence: US)
  Receive Date: 20180524
  Receipt Date: 20180524
  Transmission Date: 20180711
  Serious: Yes (Death)
  Sender: FDA-Public Use
  Company Number: None

PATIENT
  Age: 80 Year

DRUGS (16)
  1. ATORVASTATIN [Concomitant]
     Active Substance: ATORVASTATIN
  2. ALOE VERA [Concomitant]
     Active Substance: ALOE VERA LEAF
  3. NASONEX [Concomitant]
     Active Substance: MOMETASONE FUROATE
  4. ALBUTEROL. [Concomitant]
     Active Substance: ALBUTEROL
  5. METOPROLOL TARTRATE. [Concomitant]
     Active Substance: METOPROLOL TARTRATE
  6. ASA [Concomitant]
     Active Substance: ASPIRIN
  7. OMEPRAZOLE. [Concomitant]
     Active Substance: OMEPRAZOLE
  8. LEVOFLOXCIN [Concomitant]
     Active Substance: LEVOFLOXACIN
  9. FINASTERIDE. [Concomitant]
     Active Substance: FINASTERIDE
  10. MUCINEX [Concomitant]
     Active Substance: GUAIFENESIN
  11. COLON CLEANER [Concomitant]
  12. HYD POL/CPM [Concomitant]
  13. FINASERIDE [Concomitant]
  14. ESBRIET [Suspect]
     Active Substance: PIRFENIDONE
     Route: 048
     Dates: start: 20160301
  15. ZYRTEC [Concomitant]
     Active Substance: CETIRIZINE HYDROCHLORIDE
  16. LEVOTHYROXIN [Concomitant]
     Active Substance: LEVOTHYROXINE

REACTIONS (1)
  - Death [None]
